FAERS Safety Report 4705173-9 (Version None)
Quarter: 2005Q3

REPORT INFORMATION
  Report Type: 
  Country: None (occurrence: None)
  Receive Date: 20050701
  Receipt Date: 20050624
  Transmission Date: 20060218
  Serious: Yes (Hospitalization)
  Sender: FDA-Public Use
  Company Number: US-MERCK-0506USA03822

PATIENT
  Sex: Male

DRUGS (2)
  1. ZETIA [Suspect]
     Indication: BLOOD CHOLESTEROL INCREASED
     Route: 048
  2. PRAVACHOL [Concomitant]
     Route: 065

REACTIONS (2)
  - APPENDIX DISORDER [None]
  - BLOOD CREATINE PHOSPHOKINASE INCREASED [None]
